FAERS Safety Report 25719556 (Version 2)
Quarter: 2025Q3

REPORT INFORMATION
  Report Type: Spontaneous
  Country: EU (occurrence: EU)
  Receive Date: 20250825
  Receipt Date: 20250902
  Transmission Date: 20251020
  Serious: Yes (Life-Threatening, Other)
  Sender: Vantive US Healthcare
  Company Number: EU-VANTIVE-2025VAN003867

PATIENT
  Age: 7 Month
  Sex: Female

DRUGS (1)
  1. CALCIUM CHLORIDE\DEXTROSE MONOHYDRATE\LACTIC ACID\MAGNESIUM CHLORIDE\P [Suspect]
     Active Substance: CALCIUM CHLORIDE\DEXTROSE MONOHYDRATE\LACTIC ACID\MAGNESIUM CHLORIDE\POTASSIUM CHLORIDE\SODIUM BICAR
     Indication: Haemofiltration
     Route: 042
     Dates: start: 20231107, end: 20231114

REACTIONS (2)
  - Cardiac arrest [Recovered/Resolved]
  - Hyperkalaemia [Recovered/Resolved]

NARRATIVE: CASE EVENT DATE: 20231114
